FAERS Safety Report 6419762-7 (Version None)
Quarter: 2009Q4

REPORT INFORMATION
  Report Type: 
  Country: None (occurrence: None)
  Receive Date: 20091029
  Receipt Date: 20091022
  Transmission Date: 20100525
  Serious: Yes (Hospitalization)
  Sender: FDA-Public Use
  Company Number: DE-ABBOTT-09P-062-0499081-00

PATIENT
  Sex: Female
  Weight: 69 kg

DRUGS (3)
  1. HUMIRA [Suspect]
     Indication: ANKYLOSING SPONDYLITIS
     Route: 058
     Dates: start: 20080909, end: 20081002
  2. HUMIRA [Suspect]
     Route: 050
     Dates: start: 20090120
  3. AZATHIOPRIN [Concomitant]
     Indication: ANKYLOSING SPONDYLITIS

REACTIONS (1)
  - MAMMOPLASTY [None]
